FAERS Safety Report 7081199-8 (Version None)
Quarter: 2010Q4

REPORT INFORMATION
  Report Type: 
  Country: None (occurrence: None)
  Receive Date: 20101103
  Receipt Date: 20101027
  Transmission Date: 20110411
  Serious: Yes (Hospitalization)
  Sender: FDA-Public Use
  Company Number: IT-ROCHE-736767

PATIENT
  Sex: Female

DRUGS (1)
  1. AVASTIN [Suspect]
     Dosage: FREQUENCY: CYCLE
     Route: 042
     Dates: start: 20090126, end: 20100413

REACTIONS (1)
  - ATRIAL FIBRILLATION [None]
